FAERS Safety Report 26110605 (Version 1)
Quarter: 2025Q4

REPORT INFORMATION
  Report Type: Spontaneous
  Country: GB (occurrence: GB)
  Receive Date: 20251202
  Receipt Date: 20251202
  Transmission Date: 20260117
  Serious: Yes (Hospitalization, Disabling, Other)
  Sender: ACCORD
  Company Number: None

PATIENT
  Age: 42 Year
  Sex: Male
  Weight: 79 kg

DRUGS (5)
  1. USTEKINUMAB [Suspect]
     Active Substance: USTEKINUMAB
     Indication: Product used for unknown indication
  2. MIRTAZAPINE [Concomitant]
     Active Substance: MIRTAZAPINE
  3. PREDNISOLONE [Concomitant]
     Active Substance: PREDNISOLONE
     Indication: Crohn^s disease
  4. OMEPRAZOLE [Concomitant]
     Active Substance: OMEPRAZOLE
  5. CYCLIZINE [Concomitant]
     Active Substance: CYCLIZINE

REACTIONS (1)
  - Neuropathy peripheral [Not Recovered/Not Resolved]

NARRATIVE: CASE EVENT DATE: 20251020
